FAERS Safety Report 16114524 (Version 2)
Quarter: 2019Q2

REPORT INFORMATION
  Report Type: Spontaneous
  Country: KZ (occurrence: KZ)
  Receive Date: 20190325
  Receipt Date: 20190408
  Transmission Date: 20190711
  Serious: Yes (Hospitalization, Other)
  Sender: FDA-Public Use
  Company Number: KZ-BAYER-2019-052986

PATIENT
  Age: 9 Month
  Sex: Female
  Weight: 6.8 kg

DRUGS (3)
  1. ASPIRIN. [Suspect]
     Active Substance: ASPIRIN
     Dosage: UNK
     Route: 064
  2. CARDIOMAGNYL [Suspect]
     Active Substance: ASPIRIN\MAGNESIUM HYDROXIDE
     Dosage: UNK
     Route: 064
  3. DEXAMETHASONE. [Concomitant]
     Active Substance: DEXAMETHASONE
     Dosage: UNK
     Route: 064

REACTIONS (18)
  - Cytomegalovirus infection [None]
  - Jaundice [None]
  - Low birth weight baby [None]
  - Congenital pneumonia [None]
  - Intraventricular haemorrhage [None]
  - Premature baby [None]
  - Retinopathy of prematurity [None]
  - Neonatal respiratory distress syndrome [None]
  - Adrenal insufficiency [None]
  - Anaemia [None]
  - Thrombocytopenia [None]
  - Neutropenia [None]
  - Haemangioma of skin [None]
  - Foetal exposure timing unspecified [None]
  - Bronchopulmonary dysplasia [None]
  - Heart disease congenital [None]
  - Anaemia neonatal [None]
  - Hypoxic-ischaemic encephalopathy [None]
